FAERS Safety Report 8571902-X (Version None)
Quarter: 2012Q2

REPORT INFORMATION
  Report Type: 
  Country: None (occurrence: None)
  Receive Date: 20120418
  Receipt Date: 20100120
  Transmission Date: 20120825
  Serious: Yes (Other)
  Sender: FDA-Public Use
  Company Number: PHEH2010US01137

PATIENT
  Sex: Female

DRUGS (1)
  1. DIOVAN HCT [Suspect]
     Dosage: 80/12.5 MG, ORAL
     Route: 048

REACTIONS (6)
  - ANGIOEDEMA [None]
  - LIP SWELLING [None]
  - EYE SWELLING [None]
  - SWELLING FACE [None]
  - URTICARIA [None]
  - RASH [None]
